FAERS Safety Report 4627058-9 (Version None)
Quarter: 2005Q1

REPORT INFORMATION
  Report Type: 
  Country: None (occurrence: None)
  Receive Date: 20050331
  Receipt Date: 20050324
  Transmission Date: 20050727
  Serious: Yes (Hospitalization)
  Sender: FDA-Public Use
  Company Number: 2005AL001186

PATIENT
  Age: 32 Year
  Sex: Male

DRUGS (11)
  1. SERAX (OXAZEPAM) TABLETS, 15 MG (ALPHARMA) (SERAX (OXAZEPAM) TABLETS, [Suspect]
     Dosage: PO
     Route: 048
  2. ARTANE [Suspect]
     Dosage: PO
     Route: 048
     Dates: end: 20050121
  3. ZUCLOPENTHIXOL DECANOATE ({NULL}) [Suspect]
     Dosage: IV
     Route: 042
     Dates: end: 20050117
  4. LOXAPAC ({NULL}) [Suspect]
     Dosage: IV
     Dates: end: 20050117
  5. RISPERDAL [Suspect]
     Dosage: PO
     Route: 048
     Dates: end: 20050121
  6. TERCIAN ({NULL}) [Suspect]
     Dosage: PO
     Route: 048
     Dates: end: 20050123
  7. NITRENDIPINE [Concomitant]
  8. BISOPROLOL FUMARATE [Concomitant]
  9. SULFARLEM [Concomitant]
  10. MACROGOL [Concomitant]
  11. STILLNOX [Concomitant]

REACTIONS (2)
  - BLOOD SODIUM INCREASED [None]
  - NEUROLEPTIC MALIGNANT SYNDROME [None]
